FAERS Safety Report 19549327 (Version 1)
Quarter: 2021Q3

REPORT INFORMATION
  Report Type: Spontaneous
  Country: US (occurrence: US)
  Receive Date: 20210715
  Receipt Date: 20210715
  Transmission Date: 20211014
  Serious: Yes (Other)
  Sender: FDA-Public Use
  Company Number: None

PATIENT
  Age: 46 Year
  Sex: Female
  Weight: 70.4 kg

DRUGS (2)
  1. MODAFINIL. [Suspect]
     Active Substance: MODAFINIL
  2. MODAFINIL. [Concomitant]
     Active Substance: MODAFINIL
     Dates: start: 20200818, end: 20200929

REACTIONS (1)
  - Palpitations [None]

NARRATIVE: CASE EVENT DATE: 20200915
